FAERS Safety Report 6288179-0 (Version None)
Quarter: 2009Q3

REPORT INFORMATION
  Report Type: 
  Country: None (occurrence: None)
  Receive Date: 20090729
  Receipt Date: 20090717
  Transmission Date: 20100115
  Serious: Yes (Disabling)
  Sender: FDA-Public Use
  Company Number: PHHY2009IT29807

PATIENT
  Sex: Female

DRUGS (4)
  1. ZOMETA [Suspect]
     Indication: MULTIPLE MYELOMA
     Dosage: 1 DF, QMO
     Dates: start: 20020101, end: 20060901
  2. DEXAMETHASONE [Concomitant]
  3. THALIDOMIDE [Concomitant]
  4. ANTIBIOTICS [Concomitant]

REACTIONS (4)
  - BONE DISORDER [None]
  - DEBRIDEMENT [None]
  - FISTULA [None]
  - OSTEONECROSIS [None]
